FAERS Safety Report 8263421-5 (Version None)
Quarter: 2012Q1

REPORT INFORMATION
  Report Type: 
  Country: None (occurrence: None)
  Receive Date: 20120327
  Receipt Date: 20110106
  Transmission Date: 20120608
  Serious: Yes (Other)
  Sender: FDA-Public Use
  Company Number: PHHY2010US24842

PATIENT
  Age: 62 Year
  Sex: Female

DRUGS (1)
  1. GLEEVEC [Suspect]
     Indication: GASTROINTESTINAL STROMAL TUMOUR
     Dosage: 300 MG, QD, ORAL
     Route: 048
     Dates: start: 20100318

REACTIONS (4)
  - RASH [None]
  - NASOPHARYNGITIS [None]
  - PRURITUS [None]
  - SINUSITIS [None]
